FAERS Safety Report 9024310 (Version 4)
Quarter: 2013Q2

REPORT INFORMATION
  Report Type: Spontaneous
  Country: BR (occurrence: BR)
  Receive Date: 20130121
  Receipt Date: 20130401
  Transmission Date: 20140414
  Serious: Yes (Hospitalization)
  Sender: FDA-Public Use
  Company Number: PHHY2013BR004931

PATIENT
  Age: 15 Year
  Sex: Female
  Weight: 36 kg

DRUGS (3)
  1. EXJADE [Suspect]
     Indication: IRON OVERLOAD
     Dosage: 500 MG, QD
     Route: 048
  2. FOLIC ACID [Concomitant]
     Indication: DEFORMITY
     Dosage: 1 DF, DAILY
     Route: 048
  3. SOMATROPIN [Concomitant]
     Indication: BLOOD GROWTH HORMONE ABNORMAL
     Dosage: 0.7 ML, DAILY
     Route: 058

REACTIONS (7)
  - Pneumonia [Recovered/Resolved]
  - Malaise [Recovered/Resolved]
  - Haemoglobin decreased [Recovered/Resolved]
  - Pyrexia [Recovered/Resolved]
  - Appetite disorder [Recovered/Resolved]
  - Liver disorder [Recovered/Resolved]
  - Serum ferritin increased [Recovered/Resolved]
